FAERS Safety Report 23062671 (Version 2)
Quarter: 2024Q1

REPORT INFORMATION
  Report Type: Spontaneous
  Country: CA (occurrence: CA)
  Receive Date: 20231013
  Receipt Date: 20240118
  Transmission Date: 20240409
  Serious: Yes (Other)
  Sender: FDA-Public Use
  Company Number: CA-PFIZER INC-202300319807

PATIENT
  Age: 23 Year
  Sex: Female

DRUGS (1)
  1. ABRILADA [Suspect]
     Active Substance: ADALIMUMAB-AFZB
     Indication: Hidradenitis
     Dosage: WEEK 0: 160 MG, WEEK 2: 80MG, THEN 40MG EVERY WEEK STARTING WEEK 4
     Route: 058
     Dates: start: 20221207

REACTIONS (2)
  - Spinal operation [Unknown]
  - Mental disorder [Unknown]

NARRATIVE: CASE EVENT DATE: 20230901
